FAERS Safety Report 8570848-0 (Version None)
Quarter: 2012Q3

REPORT INFORMATION
  Report Type: 
  Country: None (occurrence: None)
  Receive Date: 20120806
  Receipt Date: 20120725
  Transmission Date: 20120928
  Serious: Yes (Hospitalization)
  Sender: FDA-Public Use
  Company Number: US-BIOGENIDEC-2012BI021844

PATIENT
  Sex: Female

DRUGS (1)
  1. TYSABRI [Suspect]
     Indication: MULTIPLE SCLEROSIS
     Route: 042
     Dates: start: 20090522, end: 20120420

REACTIONS (4)
  - FALL [None]
  - CERVICAL VERTEBRAL FRACTURE [None]
  - LOWER LIMB FRACTURE [None]
  - ANKLE FRACTURE [None]
